FAERS Safety Report 9325027 (Version 1)
Quarter: 2013Q2

REPORT INFORMATION
  Report Type: Spontaneous
  Country: AU (occurrence: None)
  Receive Date: 20130530
  Receipt Date: 20130530
  Transmission Date: 20140414
  Serious: Yes (Hospitalization, Other)
  Sender: FDA-Public Use
  Company Number: AUR-APL-2013-04422

PATIENT
  Age: 70 Year
  Sex: Male

DRUGS (2)
  1. RAMIPRIL [Suspect]
     Indication: PRODUCT USED FOR UNKNOWN INDICATION
  2. DILANTIN (PHENYTOIN) [Concomitant]

REACTIONS (6)
  - Fall [None]
  - Laceration [None]
  - Laceration [None]
  - Epilepsy [None]
  - Hypertension [None]
  - Disease progression [None]
